FAERS Safety Report 18218858 (Version 1)
Quarter: 2020Q3

REPORT INFORMATION
  Report Type: Spontaneous
  Country: US (occurrence: US)
  Receive Date: 20200901
  Receipt Date: 20200901
  Transmission Date: 20201103
  Serious: Yes (Other)
  Sender: FDA-Public Use
  Company Number: NVSC2020US239428

PATIENT
  Age: 35 Year
  Sex: Female

DRUGS (1)
  1. QUETIAPINE. [Suspect]
     Active Substance: QUETIAPINE
     Indication: PRODUCT USED FOR UNKNOWN INDICATION
     Dosage: 36 G
     Route: 065

REACTIONS (8)
  - Hypotension [Unknown]
  - Depressed level of consciousness [Unknown]
  - Hypoxia [Unknown]
  - Intentional overdose [Unknown]
  - Encephalopathy [Unknown]
  - Status epilepticus [Unknown]
  - Mucosal disorder [Unknown]
  - Tachycardia [Unknown]
